FAERS Safety Report 24249673 (Version 1)
Quarter: 2024Q3

REPORT INFORMATION
  Report Type: Spontaneous
  Country: US (occurrence: US)
  Receive Date: 20240826
  Receipt Date: 20240826
  Transmission Date: 20241017
  Serious: No
  Sender: SANOFI AVENTIS
  Company Number: US-SA-SAC20240819000649

PATIENT
  Age: 65 Year
  Sex: Female
  Weight: 69.85 kg

DRUGS (5)
  1. KEVZARA [Suspect]
     Active Substance: SARILUMAB
     Indication: Polymyalgia rheumatica
     Dosage: 200 MG, QOW
     Route: 058
     Dates: start: 20231127
  2. KEVZARA [Suspect]
     Active Substance: SARILUMAB
     Indication: Arthritis
  3. CALCIUM 600 + D3 PLUS MINERALS [Concomitant]
     Dosage: UNK
  4. FAMOTIDINE [Concomitant]
     Active Substance: FAMOTIDINE
     Dosage: UNK
  5. ROSUVASTATIN CALCIUM [Concomitant]
     Active Substance: ROSUVASTATIN CALCIUM
     Dosage: UNK

REACTIONS (3)
  - Dyspepsia [Not Recovered/Not Resolved]
  - Chest pain [Not Recovered/Not Resolved]
  - Product use in unapproved indication [Unknown]

NARRATIVE: CASE EVENT DATE: 20231127
